FAERS Safety Report 23244668 (Version 1)
Quarter: 2023Q4

REPORT INFORMATION
  Report Type: Report from Study
  Country: BR (occurrence: BR)
  Receive Date: 20231130
  Receipt Date: 20231130
  Transmission Date: 20240109
  Serious: Yes (Other)
  Sender: FDA-Public Use
  Company Number: BR-GLAXOSMITHKLINE-BR2023049080

PATIENT
  Age: 61 Year
  Sex: Female

DRUGS (5)
  1. BELANTAMAB MAFODOTIN [Suspect]
     Active Substance: BELANTAMAB MAFODOTIN
     Indication: Plasma cell myeloma refractory
     Dosage: 1 MG/KG, CYC
     Route: 042
     Dates: start: 20230330, end: 20230330
  2. NIROGACESTAT [Suspect]
     Active Substance: NIROGACESTAT
     Indication: Plasma cell myeloma refractory
     Dosage: 1 DF, BID (100 MG TABLETS CONTAINER)
     Route: 048
     Dates: start: 20230328, end: 20230329
  3. NIROGACESTAT [Suspect]
     Active Substance: NIROGACESTAT
     Dosage: 1 DF, BID
     Route: 048
     Dates: start: 20230330, end: 20230402
  4. LENALIDOMIDE [Suspect]
     Active Substance: LENALIDOMIDE
     Indication: Plasma cell myeloma refractory
     Dosage: 25 MG, QD
     Route: 048
     Dates: start: 20230330, end: 20230402
  5. DEXAMETHASONE [Suspect]
     Active Substance: DEXAMETHASONE
     Indication: Plasma cell myeloma refractory
     Dosage: 40 MG, CYC (DAYS 1, 8, 15, 22)
     Route: 048
     Dates: start: 20230330, end: 20230330

REACTIONS (3)
  - Aspartate aminotransferase increased [Recovered/Resolved]
  - Alanine aminotransferase increased [Recovered/Resolved]
  - Drug-induced liver injury [Recovered/Resolved]

NARRATIVE: CASE EVENT DATE: 20230403
